FAERS Safety Report 22784616 (Version 5)
Quarter: 2024Q2

REPORT INFORMATION
  Report Type: Report from Study
  Country: US (occurrence: US)
  Receive Date: 20230804
  Receipt Date: 20240621
  Transmission Date: 20240716
  Serious: Yes (Other)
  Sender: FDA-Public Use
  Company Number: US-ACADIA PHARMACEUTICALS INC.-ACA-2023-TRF-002895

PATIENT
  Sex: Female

DRUGS (16)
  1. DAYBUE [Suspect]
     Active Substance: TROFINETIDE
     Indication: Rett syndrome
     Dosage: 50 MILLILITER, BID
     Route: 048
     Dates: start: 20230503
  2. DAYBUE [Suspect]
     Active Substance: TROFINETIDE
     Dosage: 20 MILLILITER, BID
     Route: 048
  3. DAYBUE [Suspect]
     Active Substance: TROFINETIDE
     Dosage: 30 MILLILITER, BID
     Route: 048
  4. DAYBUE [Suspect]
     Active Substance: TROFINETIDE
     Dosage: 40 MILLILITER, BID
     Route: 048
  5. DAYBUE [Suspect]
     Active Substance: TROFINETIDE
     Dosage: 45 MILLILITER, BID
     Route: 048
  6. DAYBUE [Suspect]
     Active Substance: TROFINETIDE
     Dosage: 50 MILLILITER, BID
     Route: 048
  7. DAYBUE [Suspect]
     Active Substance: TROFINETIDE
     Dosage: 35 MILLILITER, BID
     Route: 048
  8. DAYBUE [Suspect]
     Active Substance: TROFINETIDE
     Dosage: 60 MILLILITER, BID
     Route: 048
  9. DAYBUE [Suspect]
     Active Substance: TROFINETIDE
     Dosage: DOSING 3X A DAY TO SPREAD OUT THE 100ML
  10. DAYBUE [Suspect]
     Active Substance: TROFINETIDE
     Dosage: 50 MILLILITER, BID
     Route: 048
  11. DAYBUE [Suspect]
     Active Substance: TROFINETIDE
     Dosage: 60 MILLILITER BID
     Route: 048
  12. DAYBUE [Suspect]
     Active Substance: TROFINETIDE
     Dosage: 40 MILLILITER BID
     Route: 048
  13. DAYBUE [Suspect]
     Active Substance: TROFINETIDE
     Dosage: 60 MILLILITER BID
     Route: 048
  14. MIRALAX [Suspect]
     Active Substance: POLYETHYLENE GLYCOL 3350
  15. GASEX [Concomitant]
     Indication: Eructation
  16. MAGNESIUM [Concomitant]
     Active Substance: MAGNESIUM
     Indication: Constipation

REACTIONS (29)
  - Self-destructive behaviour [Unknown]
  - Flatulence [Unknown]
  - Flatulence [Not Recovered/Not Resolved]
  - Constipation [Not Recovered/Not Resolved]
  - Bruxism [Unknown]
  - Drooling [Unknown]
  - Adverse drug reaction [Unknown]
  - Flatulence [Not Recovered/Not Resolved]
  - Anger [Recovered/Resolved]
  - Flatulence [Unknown]
  - Intentional dose omission [Recovered/Resolved]
  - Speech disorder [Unknown]
  - Crying [Unknown]
  - Toothache [Unknown]
  - Mood altered [Unknown]
  - Headache [Unknown]
  - Eructation [Recovering/Resolving]
  - Muscle spasms [Unknown]
  - Product dose omission issue [Recovered/Resolved]
  - Inappropriate schedule of product administration [Unknown]
  - Abdominal pain upper [Unknown]
  - Underdose [Unknown]
  - Bruxism [Unknown]
  - Drooling [Unknown]
  - Mood swings [Unknown]
  - Abnormal behaviour [Unknown]
  - Nasal congestion [Not Recovered/Not Resolved]
  - Mood swings [Recovering/Resolving]
  - Diarrhoea [Not Recovered/Not Resolved]
